FAERS Safety Report 9881880 (Version 1)
Quarter: 2014Q1

REPORT INFORMATION
  Report Type: Spontaneous
  Country: US (occurrence: None)
  Receive Date: 20140205
  Receipt Date: 20140205
  Transmission Date: 20141002
  Serious: Yes (Hospitalization)
  Sender: FDA-Public Use
  Company Number: 2014AP000950

PATIENT
  Age: 9 Year
  Sex: Male
  Weight: 21 kg

DRUGS (32)
  1. FERRIPROX (500 MG) [Suspect]
     Indication: IRON OVERLOAD
     Route: 048
     Dates: start: 20121210, end: 20140106
  2. FERRIPROX (500 MG) [Suspect]
     Indication: VACTERL SYNDROME
     Route: 048
     Dates: start: 20121210, end: 20140106
  3. HYDROCORTISONE [Concomitant]
  4. TRIAMCINOLONE [Concomitant]
  5. GABAPENTIN [Concomitant]
  6. ONDANSETRON [Concomitant]
  7. DIPHENHYDRAMINE [Concomitant]
  8. CETIRIZINE [Concomitant]
  9. CHOLESTYRAMINE [Concomitant]
  10. ADVAIR HFA [Concomitant]
  11. IPRATROPIUM [Concomitant]
  12. XOPENEX HFA [Concomitant]
  13. GENTAMICIN [Concomitant]
  14. NYSTATIN [Concomitant]
  15. PETROLATUM [Concomitant]
  16. VASELINE [Concomitant]
  17. ZINC OXIDE [Concomitant]
  18. SINGULAIR [Concomitant]
  19. AZITHROMYCIN [Concomitant]
  20. CALCIUM PHOSPHATE [Concomitant]
  21. PHOSPHA 250 NEUTRA [Concomitant]
  22. POTASSIUM PHOSPHATE MONOBASIC [Concomitant]
  23. LACTOBACILLUS ACIDOPHILUS [Concomitant]
  24. OMEPRAZOLE [Concomitant]
  25. CHOLECALCIFEROL [Concomitant]
  26. ROCALTROL [Concomitant]
  27. VITAMIN B-12 [Concomitant]
  28. AMINO-ACID COMPLEX [Concomitant]
  29. DISOPYRAMIDE [Concomitant]
  30. DOXEPIN [Concomitant]
  31. EPOETIN [Concomitant]
  32. DIANEAL [Concomitant]

REACTIONS (3)
  - Systemic inflammatory response syndrome [None]
  - Hypotension [None]
  - Hypocalcaemia [None]
